FAERS Safety Report 22979567 (Version 5)
Quarter: 2024Q3

REPORT INFORMATION
  Report Type: Spontaneous
  Country: US (occurrence: US)
  Receive Date: 20230925
  Receipt Date: 20240701
  Transmission Date: 20241017
  Serious: Yes (Other)
  Sender: PFIZER
  Company Number: US-PFIZER INC-PV202300158386

PATIENT
  Age: 60 Year
  Sex: Male

DRUGS (2)
  1. XELJANZ XR [Suspect]
     Active Substance: TOFACITINIB CITRATE
     Indication: Rheumatoid arthritis
     Dosage: 11 MG, 1X/DAY
     Route: 048
     Dates: start: 202307, end: 202403
  2. XELJANZ XR [Suspect]
     Active Substance: TOFACITINIB CITRATE
     Dosage: UNK

REACTIONS (13)
  - Pneumonia [Recovered/Resolved]
  - Condition aggravated [Unknown]
  - Middle insomnia [Unknown]
  - Hypoaesthesia [Unknown]
  - Memory impairment [Unknown]
  - Motor dysfunction [Not Recovered/Not Resolved]
  - Sensitivity to weather change [Unknown]
  - Nasopharyngitis [Unknown]
  - Rhinitis allergic [Unknown]
  - Nasal congestion [Recovered/Resolved]
  - Productive cough [Not Recovered/Not Resolved]
  - Fatigue [Recovered/Resolved]
  - Decreased appetite [Not Recovered/Not Resolved]

NARRATIVE: CASE EVENT DATE: 20240115
